FAERS Safety Report 6308050-5 (Version None)
Quarter: 2009Q3

REPORT INFORMATION
  Report Type: 
  Country: None (occurrence: None)
  Receive Date: 20090813
  Receipt Date: 20090803
  Transmission Date: 20100115
  Serious: Yes (Other)
  Sender: FDA-Public Use
  Company Number: B0558756A

PATIENT
  Sex: Female
  Weight: 48 kg

DRUGS (1)
  1. LAMICTAL [Suspect]
     Route: 048
     Dates: start: 20030101

REACTIONS (2)
  - PERIODONTAL DISEASE [None]
  - VISUAL ACUITY REDUCED [None]
